FAERS Safety Report 7042241 (Version 2)
Quarter: 2014Q3

REPORT INFORMATION
  Report Type: Spontaneous
  Country: US (occurrence: None)
  Receive Date: 20090624
  Receipt Date: 20140916
  Transmission Date: 20150326
  Serious: Yes (Hospitalization, Other)
  Sender: FDA-Public Use
  Company Number: 2009S1004759

PATIENT
  Age: 77 Year
  Sex: Female

DRUGS (7)
  1. PHOSPHO-SODA [Suspect]
     Active Substance: SODIUM PHOSPHATE, DIBASIC\SODIUM PHOSPHATE, MONOBASIC
     Indication: COLONOSCOPY
     Dosage: 90 ML;TOTAL;PO
     Route: 048
     Dates: start: 20080727, end: 20080728
  2. LISINOPRIL (LISINOPRIL) [Concomitant]
     Active Substance: LISINOPRIL
  3. HEPARIN [Concomitant]
     Active Substance: HEPARIN SODIUM
  4. HYDROCHLOROTHIAZIDE (HYDROCHLOROTHIAZIDE) [Concomitant]
     Active Substance: HYDROCHLOROTHIAZIDE
  5. ASPIRIN (ACETYLSALICYLIC ACID) [Concomitant]
     Active Substance: ASPIRIN
  6. NORVASC [Concomitant]
     Active Substance: AMLODIPINE BESYLATE
  7. TOPROL XL (METOPROLOL SUCCINATE) [Concomitant]

REACTIONS (14)
  - Transient ischaemic attack [None]
  - Aphasia [None]
  - Confusional state [None]
  - Hypokalaemia [None]
  - Diarrhoea [None]
  - Haemoglobin decreased [None]
  - Renal failure acute [None]
  - Meningioma [None]
  - Visual impairment [None]
  - Abdominal pain lower [None]
  - Hypotension [None]
  - Dehydration [None]
  - Blood creatinine increased [None]
  - Mental status changes [None]

NARRATIVE: CASE EVENT DATE: 20080728
